FAERS Safety Report 11228600 (Version 2)
Quarter: 2015Q3

REPORT INFORMATION
  Report Type: Spontaneous
  Country: US (occurrence: US)
  Receive Date: 20150630
  Receipt Date: 20150702
  Transmission Date: 20151125
  Serious: Yes (Other)
  Sender: FDA-Public Use
  Company Number: US-ELI_LILLY_AND_COMPANY-US201506007618

PATIENT
  Age: 80 Year
  Sex: Male

DRUGS (4)
  1. HUMULIN N [Interacting]
     Active Substance: INSULIN HUMAN
     Dosage: 20 U, EACH MORNING
     Route: 065
  2. HUMULIN N [Interacting]
     Active Substance: INSULIN HUMAN
     Dosage: 10 U, EACH EVENING
     Route: 065
  3. HUMULIN N [Suspect]
     Active Substance: INSULIN HUMAN
     Indication: TYPE 2 DIABETES MELLITUS
     Dosage: 20 U, QD
     Route: 065
     Dates: start: 20150501
  4. CLONIDINE. [Interacting]
     Active Substance: CLONIDINE
     Indication: PRODUCT USED FOR UNKNOWN INDICATION
     Dosage: 0.1 MG, QID
     Route: 065

REACTIONS (9)
  - Drug interaction [Unknown]
  - Hypertension [Unknown]
  - Drug effect incomplete [Unknown]
  - Gait disturbance [Recovered/Resolved]
  - Tremor [Unknown]
  - Blood glucose increased [Unknown]
  - Paralysis [Recovered/Resolved]
  - Aphasia [Unknown]
  - Blood glucose decreased [Unknown]

NARRATIVE: CASE EVENT DATE: 20150619
